FAERS Safety Report 8632929 (Version 6)
Quarter: 2014Q4

REPORT INFORMATION
  Report Type: Spontaneous
  Country: US (occurrence: US)
  Receive Date: 20120625
  Receipt Date: 20141211
  Transmission Date: 20150529
  Serious: Yes (Hospitalization, Other)
  Sender: FDA-Public Use
  Company Number: US-ASTRAZENECA-2012SE40100

PATIENT
  Age: 81 Year
  Sex: Female
  Weight: 65.8 kg

DRUGS (9)
  1. TRIMTERENE HCTZ [Concomitant]
     Dosage: 37.5/25 ONE EVENRY MORNING
  2. PRAVASTATIN [Concomitant]
     Active Substance: PRAVASTATIN\PRAVASTATIN SODIUM
     Indication: BLOOD CHOLESTEROL ABNORMAL
     Route: 048
     Dates: start: 2014
  3. LYRICA [Concomitant]
     Active Substance: PREGABALIN
  4. TOPROL XL [Suspect]
     Active Substance: METOPROLOL SUCCINATE
     Indication: HYPERTENSION
     Route: 048
  5. LISINOPRIL. [Suspect]
     Active Substance: LISINOPRIL
     Route: 048
  6. CRESTOR [Suspect]
     Active Substance: ROSUVASTATIN CALCIUM
     Indication: BLOOD CHOLESTEROL ABNORMAL
     Route: 048
  7. CRESTOR [Suspect]
     Active Substance: ROSUVASTATIN CALCIUM
     Indication: BLOOD CHOLESTEROL ABNORMAL
     Dosage: EVERY OTHER DAY
     Route: 048
  8. TOPROL XL [Suspect]
     Active Substance: METOPROLOL SUCCINATE
     Indication: HYPERTENSION
     Dosage: GENERIC
     Route: 048
  9. CRESTOR [Suspect]
     Active Substance: ROSUVASTATIN CALCIUM
     Indication: BLOOD CHOLESTEROL ABNORMAL
     Dosage: CUT IN HALF
     Route: 048
     Dates: end: 201408

REACTIONS (15)
  - Heart rate increased [Unknown]
  - Calcinosis [Unknown]
  - Back disorder [Unknown]
  - Abdominal pain upper [Unknown]
  - Nerve injury [Unknown]
  - Drug ineffective [Unknown]
  - Intentional product misuse [Unknown]
  - Fall [Unknown]
  - Spinal fusion acquired [Unknown]
  - Adverse drug reaction [Unknown]
  - Ligament sprain [Unknown]
  - Head injury [Unknown]
  - Hypertension [Unknown]
  - Malaise [Unknown]
  - Mobility decreased [Unknown]
